FAERS Safety Report 6591322-7 (Version None)
Quarter: 2010Q1

REPORT INFORMATION
  Report Type: 
  Country: None (occurrence: None)
  Receive Date: 20100219
  Receipt Date: 20100209
  Transmission Date: 20100710
  Serious: Yes (Hospitalization)
  Sender: FDA-Public Use
  Company Number: US-BAYER-201011427BCC

PATIENT
  Age: 70 Year
  Sex: Male
  Weight: 107 kg

DRUGS (13)
  1. ALEVE (CAPLET) [Suspect]
     Indication: TOOTHACHE
     Route: 048
     Dates: start: 20100115, end: 20100129
  2. PRADAXA [Suspect]
     Indication: CEREBROVASCULAR ACCIDENT PROPHYLAXIS
     Route: 048
     Dates: start: 20060526
  3. PEPTO BISMOL [Suspect]
     Indication: OESOPHAGITIS
     Route: 048
     Dates: end: 20100129
  4. ADVAIR DISKUS 100/50 [Concomitant]
     Indication: ASTHMA
     Dosage: INHALER
     Route: 055
     Dates: start: 20090126
  5. BENICAR [Concomitant]
     Indication: HYPERTENSION
     Dosage: TOTAL DAILY DOSE: 40 MG  UNIT DOSE: 20 MG
     Route: 048
     Dates: start: 20060515
  6. CORGARD [Concomitant]
     Indication: HYPERTENSION
     Dosage: TOTAL DAILY DOSE: 40 MG  UNIT DOSE: 40 MG
     Route: 048
     Dates: start: 20070219
  7. HYDROCHLOROTHIAZIDE [Concomitant]
     Indication: HYPERTENSION
     Dosage: TOTAL DAILY DOSE: 25 MG  UNIT DOSE: 25 MG
     Route: 048
     Dates: start: 20040831
  8. LEVOXYL [Concomitant]
     Indication: HYPOTHYROIDISM
     Dosage: TOTAL DAILY DOSE: 0.175 MG  UNIT DOSE: 0.175 MG
     Route: 048
     Dates: start: 20080520
  9. MULTI-VITAMIN [Concomitant]
     Indication: VITAMIN SUPPLEMENTATION
     Route: 048
     Dates: start: 20000705
  10. PRILOSEC OTC [Concomitant]
     Indication: OESOPHAGITIS
     Dosage: TOTAL DAILY DOSE: 20 MG  UNIT DOSE: 20 MG
     Route: 048
     Dates: start: 20070615
  11. TEMAZEPAM [Concomitant]
     Indication: INSOMNIA
     Route: 048
     Dates: start: 20070306
  12. TYLENOL PM [Concomitant]
     Indication: INSOMNIA
     Route: 048
     Dates: start: 20080923
  13. VENTOLIN [Concomitant]
     Indication: ASTHMA
     Dosage: UNIT DOSE: 9 ?G
     Route: 055
     Dates: start: 20090120

REACTIONS (1)
  - ANAEMIA [None]
